FAERS Safety Report 7641105-1 (Version None)
Quarter: 2011Q3

REPORT INFORMATION
  Report Type: 
  Country: None (occurrence: None)
  Receive Date: 20110728
  Receipt Date: 20110719
  Transmission Date: 20111222
  Serious: Yes (Death, Other)
  Sender: FDA-Public Use
  Company Number: FR-SANOFI-AVENTIS-2011SA046077

PATIENT
  Age: 70 Year
  Sex: Female

DRUGS (1)
  1. LEFLUNOMIDE [Suspect]
     Route: 065

REACTIONS (11)
  - FACE OEDEMA [None]
  - COLITIS ULCERATIVE [None]
  - DRUG RASH WITH EOSINOPHILIA AND SYSTEMIC SYMPTOMS [None]
  - EROSIVE OESOPHAGITIS [None]
  - LYMPHADENOPATHY [None]
  - DIARRHOEA [None]
  - PYREXIA [None]
  - DYSPHAGIA [None]
  - HISTIOCYTOSIS HAEMATOPHAGIC [None]
  - RASH MACULO-PAPULAR [None]
  - GASTROINTESTINAL HAEMORRHAGE [None]
